FAERS Safety Report 23860666 (Version 1)
Quarter: 2024Q2

REPORT INFORMATION
  Report Type: Spontaneous
  Country: CA (occurrence: CA)
  Receive Date: 20240516
  Receipt Date: 20240516
  Transmission Date: 20240715
  Serious: Yes (Hospitalization, Other)
  Sender: FDA-Public Use
  Company Number: CA-CELLTRION INC.-2024CA010655

PATIENT

DRUGS (1)
  1. TRASTUZUMAB [Suspect]
     Active Substance: TRASTUZUMAB
     Indication: HER2 positive breast cancer
     Dosage: 375 MILLIGRAM, 1 EVERY 3 WEEKS
     Route: 042

REACTIONS (6)
  - Cyst [Unknown]
  - Toxicity to various agents [Unknown]
  - Malignant neoplasm progression [Unknown]
  - Haematological infection [Unknown]
  - Sepsis [Unknown]
  - Product dose omission issue [Unknown]
